FAERS Safety Report 4585877-1 (Version None)
Quarter: 2005Q1

REPORT INFORMATION
  Report Type: 
  Country: None (occurrence: None)
  Receive Date: 20050217
  Receipt Date: 20050201
  Transmission Date: 20050727
  Serious: No
  Sender: FDA-Public Use
  Company Number: GB-GLAXOSMITHKLINE-B0369589A

PATIENT
  Age: 56 Year
  Sex: Male
  Weight: 108 kg

DRUGS (4)
  1. AVANDIA [Suspect]
     Indication: DIABETES MELLITUS NON-INSULIN-DEPENDENT
     Route: 048
  2. METFORMIN HCL [Concomitant]
     Indication: DIABETES MELLITUS NON-INSULIN-DEPENDENT
     Dosage: 1G THREE TIMES PER DAY
     Route: 048
  3. ATENOLOL [Concomitant]
     Indication: HYPERTENSION
     Dosage: 50MG PER DAY
     Route: 048
  4. ASPIRIN [Concomitant]
     Indication: PROPHYLAXIS
     Route: 048

REACTIONS (4)
  - ACCIDENTAL OVERDOSE [None]
  - DIABETES MELLITUS [None]
  - PRE-EXISTING CONDITION IMPROVED [None]
  - THERAPEUTIC RESPONSE UNEXPECTED [None]
